FAERS Safety Report 9746667 (Version 2)
Quarter: 2014Q1

REPORT INFORMATION
  Report Type: Spontaneous
  Country: US (occurrence: US)
  Receive Date: 20131211
  Receipt Date: 20140204
  Transmission Date: 20141002
  Serious: Yes (Hospitalization, Other)
  Sender: FDA-Public Use
  Company Number: US-SA-2013SA127196

PATIENT
  Age: 66 Year
  Sex: Female

DRUGS (4)
  1. RENVELA [Suspect]
     Indication: HYPERPHOSPHATAEMIA
     Route: 048
     Dates: start: 201305
  2. RENVELA [Suspect]
     Indication: HYPERPHOSPHATAEMIA
     Route: 048
  3. PHOSLO [Concomitant]
  4. LANTUS [Concomitant]

REACTIONS (3)
  - Impaired gastric emptying [Unknown]
  - Diarrhoea [Unknown]
  - Hyperphosphataemia [Unknown]
